FAERS Safety Report 7146663-1 (Version None)
Quarter: 2010Q4

REPORT INFORMATION
  Report Type: 
  Country: None (occurrence: None)
  Receive Date: 20101208
  Receipt Date: 20101126
  Transmission Date: 20110411
  Serious: Yes (Hospitalization)
  Sender: FDA-Public Use
  Company Number: PL-GENENTECH-310634

PATIENT
  Sex: Female
  Weight: 60 kg

DRUGS (6)
  1. MABTHERA [Suspect]
     Indication: RHEUMATOID ARTHRITIS
     Dosage: 1000 MG, UNK
     Route: 042
     Dates: start: 20101020, end: 20101020
  2. HELICID [Concomitant]
     Indication: PROPHYLAXIS AGAINST GASTROINTESTINAL ULCER
     Dosage: 20 MG, QAM
     Route: 048
  3. POLPRIL [Concomitant]
     Indication: HYPERTENSION
     Dosage: 10 MG, QAM
     Route: 048
  4. AMLOZEK [Concomitant]
     Indication: HYPERTENSION
     Dosage: 5 MG, QAM
     Route: 048
  5. METYPRED [Concomitant]
     Indication: RHEUMATOID ARTHRITIS
     Dosage: 2 MG, QAM
     Route: 048
  6. OSTEMAX [Concomitant]
     Indication: OSTEOPOROSIS
     Dosage: 70 MG, 1/WEEK
     Route: 048

REACTIONS (4)
  - CONJUNCTIVAL HYPERAEMIA [None]
  - EYELID OEDEMA [None]
  - ILL-DEFINED DISORDER [None]
  - PRURITUS [None]
